FAERS Safety Report 4887059-2 (Version None)
Quarter: 2006Q1

REPORT INFORMATION
  Report Type: 
  Country: None (occurrence: None)
  Receive Date: 20060120
  Receipt Date: 20050718
  Transmission Date: 20060701
  Serious: Yes (Hospitalization, Other)
  Sender: FDA-Public Use
  Company Number: US-MERCK-0507USA02885

PATIENT
  Age: 63 Year
  Sex: Male
  Weight: 109 kg

DRUGS (10)
  1. VIOXX [Suspect]
     Indication: ARTHRITIS
     Route: 048
  2. XANAX [Concomitant]
     Route: 065
  3. NEURONTIN [Concomitant]
     Route: 065
  4. CARDURA [Concomitant]
     Route: 065
  5. PRILOSEC [Concomitant]
     Route: 065
  6. PAXIL [Concomitant]
     Route: 065
  7. LISINOPRIL [Concomitant]
     Route: 065
  8. LIPITOR [Concomitant]
     Route: 065
  9. OXYCONTIN [Concomitant]
     Route: 065
  10. ADVAIR DISKUS 250/50 [Concomitant]
     Route: 065

REACTIONS (7)
  - ARTHROPATHY [None]
  - CEREBRAL INFARCTION [None]
  - CEREBROVASCULAR ACCIDENT [None]
  - DELIRIUM [None]
  - LUNG DISORDER [None]
  - MUSCULOSKELETAL DISCOMFORT [None]
  - PNEUMONIA [None]
